FAERS Safety Report 16149735 (Version 3)
Quarter: 2019Q2

REPORT INFORMATION
  Report Type: Report from Study
  Country: GB (occurrence: GB)
  Receive Date: 20190402
  Receipt Date: 20190429
  Transmission Date: 20190711
  Serious: Yes (Life-Threatening, Hospitalization, Other)
  Sender: FDA-Public Use
  Company Number: GB-MYLANLABS-2019M1028432

PATIENT
  Age: 36 Year
  Sex: Male

DRUGS (7)
  1. SENNA                              /00571901/ [Concomitant]
     Active Substance: SENNOSIDES A AND B
     Indication: CONSTIPATION
     Dosage: BID,15MG IN MORNING,30MG IN AT NIGHT
  2. FLUOROURACIL. [Suspect]
     Active Substance: FLUOROURACIL
     Indication: GASTROINTESTINAL CARCINOMA
     Dosage: UNK
     Dates: start: 20180501
  3. LAXIDO [Concomitant]
     Active Substance: POLYETHYLENE GLYCOL 3350\POTASSIUM CHLORIDE\SODIUM BICARBONATE\SODIUM CHLORIDE
     Indication: CONSTIPATION
     Dosage: QID,1 SACHET 4 TIMES A DAY
     Route: 048
  4. FLUOXETINE [Concomitant]
     Active Substance: FLUOXETINE HYDROCHLORIDE
     Indication: DEPRESSED MOOD
     Dosage: 50 MILLIGRAM, QD
     Route: 048
  5. CALCIUM FOLINATE [Suspect]
     Active Substance: LEUCOVORIN CALCIUM
     Indication: GASTROINTESTINAL CARCINOMA
     Dosage: UNK
     Dates: start: 20180501
  6. DENZAPINE [Concomitant]
     Active Substance: CLOZAPINE
     Indication: SCHIZOPHRENIA
     Dosage: BID,75MG MORNING,150MG AT NIGHT BEFORE2011
     Route: 048
  7. OXALIPLATIN. [Suspect]
     Active Substance: OXALIPLATIN
     Indication: GASTROINTESTINAL CARCINOMA
     Dosage: UNK
     Dates: start: 20180501

REACTIONS (6)
  - Pyrexia [Unknown]
  - Limb discomfort [Unknown]
  - Gastrointestinal carcinoma [Not Recovered/Not Resolved]
  - Metastasis [Not Recovered/Not Resolved]
  - Fatigue [Unknown]
  - Neutropenic sepsis [Not Recovered/Not Resolved]

NARRATIVE: CASE EVENT DATE: 20180519
